FAERS Safety Report 10379908 (Version 1)
Quarter: 2014Q3

REPORT INFORMATION
  Report Type: Spontaneous
  Country: US (occurrence: US)
  Receive Date: 20140813
  Receipt Date: 20140813
  Transmission Date: 20150326
  Serious: Yes (Hospitalization, Other)
  Sender: FDA-Public Use
  Company Number: US-GILEAD-2014-0111608

PATIENT
  Age: 47 Year
  Sex: Male

DRUGS (7)
  1. LETAIRIS [Suspect]
     Active Substance: AMBRISENTAN
     Indication: PORTAL HYPERTENSION
     Dosage: 5 MG, QD
     Dates: start: 20140423
  2. DICLOFENAC POTASSIUM. [Concomitant]
     Active Substance: DICLOFENAC POTASSIUM
  3. COREG [Concomitant]
     Active Substance: CARVEDILOL
  4. SILDENAFIL [Concomitant]
     Active Substance: SILDENAFIL
  5. FOLIC ACID. [Concomitant]
     Active Substance: FOLIC ACID
  6. ASPIRIN                            /00002701/ [Concomitant]
     Active Substance: ASPIRIN
  7. OXYCODONE [Concomitant]
     Active Substance: OXYCODONE

REACTIONS (5)
  - Dyspnoea [Unknown]
  - Fluid overload [Unknown]
  - Blood sodium decreased [Unknown]
  - Gastric infection [Unknown]
  - Oxygen saturation decreased [Unknown]
